FAERS Safety Report 15598167 (Version 6)
Quarter: 2020Q3

REPORT INFORMATION
  Report Type: Spontaneous
  Country: US (occurrence: US)
  Receive Date: 20181108
  Receipt Date: 20200901
  Transmission Date: 20201102
  Serious: Yes (Other)
  Sender: FDA-Public Use
  Company Number: US-PFIZER INC-2018411534

PATIENT
  Age: 51 Year
  Sex: Female
  Weight: 97.8 kg

DRUGS (9)
  1. LYRICA [Suspect]
     Active Substance: PREGABALIN
     Indication: NEURALGIA
  2. LYRICA [Suspect]
     Active Substance: PREGABALIN
     Indication: FIBROMYALGIA
  3. LYRICA [Suspect]
     Active Substance: PREGABALIN
     Indication: SPINAL OSTEOARTHRITIS
     Dosage: 450 MG, DAILY
     Route: 048
  4. LYRICA [Suspect]
     Active Substance: PREGABALIN
     Indication: BRAIN HERNIATION
     Dosage: 150 MG, 1X/DAY
     Route: 048
     Dates: start: 2018
  5. LYRICA [Suspect]
     Active Substance: PREGABALIN
     Indication: AUTOIMMUNE DISORDER
     Dosage: 150 MG, 3X/DAY
     Route: 048
  6. LYRICA [Suspect]
     Active Substance: PREGABALIN
     Indication: SEIZURE
  7. LYRICA [Suspect]
     Active Substance: PREGABALIN
     Indication: ARNOLD-CHIARI MALFORMATION
  8. LYRICA [Suspect]
     Active Substance: PREGABALIN
     Indication: HEADACHE
  9. KEPPRA [Concomitant]
     Active Substance: LEVETIRACETAM
     Dosage: UNK

REACTIONS (5)
  - Drug effective for unapproved indication [Unknown]
  - Nasopharyngitis [Unknown]
  - Anxiety [Unknown]
  - Drug ineffective [Unknown]
  - Drug dependence [Unknown]
